FAERS Safety Report 9046997 (Version 1)
Quarter: 2013Q1

REPORT INFORMATION
  Report Type: Spontaneous
  Country: US (occurrence: None)
  Receive Date: 20130129
  Receipt Date: 20130129
  Transmission Date: 20140127
  Serious: No
  Sender: FDA-Public Use
  Company Number: None

PATIENT
  Age: 63 Year
  Sex: Male

DRUGS (1)
  1. ACTEMRA [Suspect]
     Dosage: EVERY 4 WEEKS
     Route: 042

REACTIONS (2)
  - Brain neoplasm malignant [None]
  - Lung neoplasm malignant [None]
